FAERS Safety Report 5468547-7 (Version None)
Quarter: 2007Q3

REPORT INFORMATION
  Report Type: 
  Country: None (occurrence: None)
  Receive Date: 20070820
  Receipt Date: 20070621
  Transmission Date: 20080115
  Serious: No
  Sender: FDA-Public Use
  Company Number: WAES 0706USA04216

PATIENT
  Age: 54 Year
  Sex: Female
  Weight: 83.9154 kg

DRUGS (10)
  1. JANUVIA [Suspect]
     Indication: TYPE 2 DIABETES MELLITUS
     Dosage: 100 MG/ DAILY/ PO 50 MG/DAILY/PO
     Route: 048
     Dates: start: 20070323, end: 20070507
  2. JANUVIA [Suspect]
     Indication: TYPE 2 DIABETES MELLITUS
     Dosage: 100 MG/ DAILY/ PO 50 MG/DAILY/PO
     Route: 048
     Dates: start: 20070509, end: 20070523
  3. MAXZIDE [Concomitant]
  4. PROTONIX [Concomitant]
  5. SENOKOT [Concomitant]
  6. TAGAMET [Concomitant]
  7. ULTRAM [Concomitant]
  8. ZETIA [Concomitant]
  9. LEVOTHYROXINE SODIUM [Concomitant]
  10. METFORMIN [Concomitant]

REACTIONS (2)
  - ARTHRALGIA [None]
  - MYALGIA [None]
